FAERS Safety Report 21953610 (Version 1)
Quarter: 2023Q1

REPORT INFORMATION
  Report Type: Report from Study
  Country: US (occurrence: US)
  Receive Date: 20230204
  Receipt Date: 20230204
  Transmission Date: 20230417
  Serious: No
  Sender: FDA-Public Use
  Company Number: US-ACORDA-ACO_172943_2022

PATIENT
  Age: 58 Year
  Sex: Female

DRUGS (18)
  1. AMPYRA [Suspect]
     Active Substance: DALFAMPRIDINE
     Indication: Multiple sclerosis
     Dosage: 10 MILLIGRAM, BID
     Route: 048
     Dates: start: 201312
  2. DALFAMPRIDINE [Suspect]
     Active Substance: DALFAMPRIDINE
     Indication: Product used for unknown indication
     Dosage: 10 MILLIGRAM, Q 12 HRS
     Route: 065
  3. AUBAGIO [Concomitant]
     Active Substance: TERIFLUNOMIDE
     Indication: Product used for unknown indication
     Dosage: UNKNOWN
     Route: 065
  4. VITAMIN D3 [Concomitant]
     Active Substance: CHOLECALCIFEROL
     Indication: Product used for unknown indication
     Dosage: 10000 INTERNATIONAL UNIT
     Route: 065
  5. METOPROLOL SUCCINATE [Concomitant]
     Active Substance: METOPROLOL SUCCINATE
     Indication: Product used for unknown indication
     Dosage: UNKNOWN
     Route: 065
  6. LISINOPRIL [Concomitant]
     Active Substance: LISINOPRIL
     Indication: Product used for unknown indication
     Dosage: 10 MILLIGRAM
     Route: 065
  7. CLOPIDOGREL [Concomitant]
     Active Substance: CLOPIDOGREL BISULFATE
     Indication: Product used for unknown indication
     Dosage: 75 MILLIGRAM
     Route: 065
  8. ROSUVASTATIN CALCIUM [Concomitant]
     Active Substance: ROSUVASTATIN CALCIUM
     Indication: Product used for unknown indication
     Dosage: 10 MILLIGRAM
     Route: 065
  9. ASPIRIN [Concomitant]
     Active Substance: ASPIRIN
     Indication: Product used for unknown indication
     Dosage: 81 MILLIGRAM
     Route: 065
  10. CLONIXIN LYSINE [Concomitant]
     Active Substance: CLONIXIN LYSINE
     Indication: Product used for unknown indication
     Dosage: 800 MILLIGRAM
     Route: 065
  11. ENABLEX [Concomitant]
     Active Substance: DARIFENACIN HYDROBROMIDE
     Indication: Product used for unknown indication
     Dosage: 15 MILLIGRAM
     Route: 065
  12. VITAMIN B12 [Concomitant]
     Active Substance: CYANOCOBALAMIN
     Indication: Product used for unknown indication
     Dosage: 100 MICROGRAM
     Route: 065
  13. BETASERON [Concomitant]
     Active Substance: INTERFERON BETA-1B
     Indication: Product used for unknown indication
     Dosage: 0.3 MILLIGRAM
     Route: 065
  14. GREEN TEA 5000 [Concomitant]
     Indication: Product used for unknown indication
     Dosage: UNKNOWN
     Route: 065
  15. DAILY-VITE [Concomitant]
     Indication: Product used for unknown indication
     Dosage: UNKNOWN
     Route: 065
  16. METOPROLOL [Concomitant]
     Active Substance: METOPROLOL
     Indication: Product used for unknown indication
     Dosage: UNKNOWN
     Route: 065
  17. TUMS [Concomitant]
     Active Substance: CALCIUM CARBONATE
     Indication: Product used for unknown indication
     Dosage: UNKNOWN
     Route: 065
  18. KESIMPTA [Concomitant]
     Active Substance: OFATUMUMAB
     Indication: Product used for unknown indication
     Dosage: UNK
     Route: 065

REACTIONS (10)
  - Feeling abnormal [Unknown]
  - Therapy interrupted [Unknown]
  - Toothache [Unknown]
  - Temperature intolerance [Unknown]
  - Magnetic resonance imaging abnormal [Unknown]
  - Pain [Not Recovered/Not Resolved]
  - Fall [Not Recovered/Not Resolved]
  - Oral herpes [Unknown]
  - Fatigue [Unknown]
  - Asthenia [Unknown]

NARRATIVE: CASE EVENT DATE: 20220915
